FAERS Safety Report 6694508-6 (Version None)
Quarter: 2010Q2

REPORT INFORMATION
  Report Type: 
  Country: None (occurrence: None)
  Receive Date: 20100423
  Receipt Date: 20100413
  Transmission Date: 20101027
  Serious: Yes (Other)
  Sender: FDA-Public Use
  Company Number: FR-AMGEN-US402974

PATIENT
  Age: 45 Year
  Sex: Female

DRUGS (1)
  1. ENBREL [Suspect]
     Indication: RHEUMATOID ARTHRITIS
     Dosage: UNKNOWN FOR 1 YEAR AND A HALF, THEN TEMPORARY WITHDRAWAL AND THEN UNKNOWN FOR AN UNKNOWN PERIOD
     Route: 058

REACTIONS (1)
  - CUTANEOUS VASCULITIS [None]
